FAERS Safety Report 13737149 (Version 3)
Quarter: 2018Q2

REPORT INFORMATION
  Report Type: Report from Study
  Country: BR (occurrence: BR)
  Receive Date: 20170710
  Receipt Date: 20180507
  Transmission Date: 20180711
  Serious: Yes (Hospitalization)
  Sender: FDA-Public Use
  Company Number: BR-JNJFOC-20170704721

PATIENT
  Age: 31 Year
  Sex: Male

DRUGS (4)
  1. STELARA [Suspect]
     Active Substance: USTEKINUMAB
     Indication: PSORIASIS
     Route: 058
     Dates: start: 20160407
  2. SULBUTIAMINE [Concomitant]
     Active Substance: SULBUTIAMINE
     Route: 065
  3. AMYTRIL [Concomitant]
     Active Substance: AMITRIPTYLINE HYDROCHLORIDE
     Route: 065
  4. DEPAKENE [Concomitant]
     Active Substance: VALPROIC ACID
     Route: 065

REACTIONS (4)
  - Surgery [Unknown]
  - Drug dose omission [Unknown]
  - Brain neoplasm [Unknown]
  - Treatment noncompliance [Unknown]

NARRATIVE: CASE EVENT DATE: 201705
